FAERS Safety Report 13572364 (Version 2)
Quarter: 2017Q3

REPORT INFORMATION
  Report Type: Spontaneous
  Country: US (occurrence: US)
  Receive Date: 20170523
  Receipt Date: 20170725
  Transmission Date: 20171127
  Serious: Yes (Hospitalization)
  Sender: FDA-Public Use
  Company Number: US-JNJFOC-20170218001

PATIENT
  Age: 78 Year
  Sex: Female
  Weight: 52 kg

DRUGS (3)
  1. IMBRUVICA [Suspect]
     Active Substance: IBRUTINIB
     Indication: T-CELL LYMPHOMA
     Route: 048
     Dates: start: 2017, end: 2017
  2. IMBRUVICA [Suspect]
     Active Substance: IBRUTINIB
     Indication: T-CELL LYMPHOMA
     Route: 048
     Dates: start: 2017
  3. IMBRUVICA [Suspect]
     Active Substance: IBRUTINIB
     Indication: T-CELL LYMPHOMA
     Route: 048
     Dates: start: 20170120, end: 2017

REACTIONS (5)
  - Product use in unapproved indication [Recovered/Resolved]
  - Off label use [Recovered/Resolved]
  - Vomiting [Unknown]
  - Gastric disorder [Recovered/Resolved]
  - Nausea [Unknown]

NARRATIVE: CASE EVENT DATE: 20170120
